FAERS Safety Report 25987575 (Version 1)
Quarter: 2025Q4

REPORT INFORMATION
  Report Type: Report from Study
  Country: US (occurrence: US)
  Receive Date: 20251103
  Receipt Date: 20251103
  Transmission Date: 20260118
  Serious: Yes (Other)
  Sender: ACADIA PHARMACEUTICALS
  Company Number: US-ACADIA PHARMACEUTICALS INC.-ACA-2025-PIM-011764

PATIENT
  Age: 53 Year
  Sex: Female

DRUGS (13)
  1. NUPLAZID [Suspect]
     Active Substance: PIMAVANSERIN TARTRATE
     Indication: Parkinson^s disease
     Dosage: 34 MILLIGRAM, QD
     Route: 048
     Dates: start: 20250306
  2. NOVOLOG [Concomitant]
     Active Substance: INSULIN ASPART
  3. CARBIDOPA\LEVODOPA [Concomitant]
     Active Substance: CARBIDOPA\LEVODOPA
  4. MIRTAZAPINE [Concomitant]
     Active Substance: MIRTAZAPINE
  5. LYRICA [Concomitant]
     Active Substance: PREGABALIN
  6. METFORMIN [Concomitant]
     Active Substance: METFORMIN HYDROCHLORIDE
  7. CLONAZEPAM [Concomitant]
     Active Substance: CLONAZEPAM
  8. PRAVASTATIN [Concomitant]
     Active Substance: PRAVASTATIN
  9. LISINOPRIL [Concomitant]
     Active Substance: LISINOPRIL
  10. BENZTROPINE [Concomitant]
     Active Substance: BENZTROPINE
  11. VENLAFAXINE [Concomitant]
     Active Substance: VENLAFAXINE HYDROCHLORIDE
  12. OXCARBAZEPINE [Concomitant]
     Active Substance: OXCARBAZEPINE
  13. VITAMIN D3 [Concomitant]
     Active Substance: CHOLECALCIFEROL

REACTIONS (2)
  - Hallucination, visual [Recovered/Resolved]
  - Product dose omission issue [Recovered/Resolved]

NARRATIVE: CASE EVENT DATE: 20251023
